FAERS Safety Report 8042014-9 (Version None)
Quarter: 2012Q1

REPORT INFORMATION
  Report Type: 
  Country: None (occurrence: None)
  Receive Date: 20120112
  Receipt Date: 20120105
  Transmission Date: 20120608
  Serious: Yes (Other)
  Sender: FDA-Public Use
  Company Number: US-BAYER-200940281NA

PATIENT
  Age: 71 Year
  Sex: Female
  Weight: 72.562 kg

DRUGS (26)
  1. COLACE [Concomitant]
  2. METOPROLOL SUCCINATE [Concomitant]
  3. LASIX [Concomitant]
  4. SCOPOLAMINE [Concomitant]
  5. PERSANTINE [Concomitant]
     Dosage: 75MG
     Route: 048
     Dates: start: 20050511
  6. INTEGRILIN [Concomitant]
     Dosage: UNK
     Dates: start: 20050507
  7. PHENERGAN [Concomitant]
     Dosage: 6.25MG
     Route: 042
     Dates: start: 20050508
  8. DOPAMINE HCL [Concomitant]
  9. TRASYLOL [Suspect]
     Indication: CORONARY ARTERY BYPASS
     Dosage: TEST DOSE: 1ML THEN 200ML PUMP PRIME
     Route: 042
     Dates: start: 20050511, end: 20050511
  10. ACETYLSALICYLIC ACID SRT [Concomitant]
  11. MORPHINE [Concomitant]
  12. MAGNESIUM SULFATE [Concomitant]
     Dosage: 5MG
     Route: 042
     Dates: start: 20050508
  13. PEPCID [Concomitant]
  14. DILTIAZEM HCL [Concomitant]
  15. LIPITOR [Concomitant]
     Dosage: 40MG
     Route: 048
  16. MAVIK [Concomitant]
  17. ZOCOR [Concomitant]
  18. NITROGLYCERIN [Concomitant]
     Dosage: TITRATE
     Route: 042
     Dates: start: 20050508
  19. HEPARIN [Concomitant]
     Dosage: UNK
     Dates: start: 20050511
  20. TRASYLOL [Suspect]
     Dosage: LOADING DOSE: 200 LOADING FOLLOWED BY 50CC/HR, CONTINUED INTO ICU UNTIL DONE
  21. ZINACEF [Concomitant]
  22. SOLU-MEDROL [Concomitant]
  23. LOVENOX [Concomitant]
  24. ALLOPURINOL [Concomitant]
     Dosage: 100MG
     Route: 048
     Dates: start: 20050511
  25. HUMULIN [INSULIN HUMAN] [Concomitant]
  26. EPINEPHRINE [Concomitant]
     Dosage: UNK
     Dates: start: 20050511

REACTIONS (13)
  - RENAL FAILURE [None]
  - RENAL INJURY [None]
  - FEAR [None]
  - PAIN [None]
  - RENAL IMPAIRMENT [None]
  - ANHEDONIA [None]
  - AMPUTATION [None]
  - UNEVALUABLE EVENT [None]
  - INJURY [None]
  - PARALYSIS [None]
  - EMOTIONAL DISTRESS [None]
  - STRESS [None]
  - ANXIETY [None]
